FAERS Safety Report 25548537 (Version 1)
Quarter: 2025Q3

REPORT INFORMATION
  Report Type: Spontaneous
  Country: US (occurrence: US)
  Receive Date: 20250714
  Receipt Date: 20250714
  Transmission Date: 20251021
  Serious: No
  Sender: SUVEN PHARMACEUTICALS LIMITED
  Company Number: US-Suven-000024

PATIENT
  Age: 38 Year
  Sex: Female
  Weight: 72.57 kg

DRUGS (1)
  1. MALATHION [Suspect]
     Active Substance: MALATHION
     Indication: Lice infestation
     Route: 061
     Dates: start: 20250110

REACTIONS (2)
  - Product odour abnormal [Not Recovered/Not Resolved]
  - Product label issue [Not Recovered/Not Resolved]

NARRATIVE: CASE EVENT DATE: 20250110
